FAERS Safety Report 15758381 (Version 1)
Quarter: 2018Q4

REPORT INFORMATION
  Report Type: Spontaneous
  Country: US (occurrence: US)
  Receive Date: 20181225
  Receipt Date: 20181225
  Transmission Date: 20190205
  Serious: No
  Sender: FDA-Public Use
  Company Number: US-009507513-1812USA005101

PATIENT
  Age: 22 Year
  Sex: Female
  Weight: 124.67 kg

DRUGS (1)
  1. NEXPLANON [Suspect]
     Active Substance: ETONOGESTREL
     Dosage: 1 ROD, LEFT ARM
     Route: 059
     Dates: start: 201512, end: 20181207

REACTIONS (2)
  - No adverse event [Unknown]
  - Device breakage [Recovered/Resolved]

NARRATIVE: CASE EVENT DATE: 201712
